FAERS Safety Report 15001733 (Version 1)
Quarter: 2018Q2

REPORT INFORMATION
  Report Type: Report from Study
  Country: US (occurrence: US)
  Receive Date: 20180612
  Receipt Date: 20180612
  Transmission Date: 20180711
  Serious: Yes (Hospitalization)
  Sender: FDA-Public Use
  Company Number: US-BAYER-2017-150994

PATIENT
  Age: 66 Year
  Sex: Female
  Weight: 50.34 kg

DRUGS (3)
  1. NEXAVAR [Suspect]
     Active Substance: SORAFENIB
     Indication: ACUTE MYELOID LEUKAEMIA
     Dosage: 400 MG, BID
     Route: 048
     Dates: start: 201706, end: 2017
  2. NEXAVAR [Suspect]
     Active Substance: SORAFENIB
     Indication: ACUTE MYELOID LEUKAEMIA
     Dosage: 400 MG, BID
     Route: 048
  3. NEXAVAR [Suspect]
     Active Substance: SORAFENIB
     Indication: ACUTE MYELOID LEUKAEMIA
     Dosage: 400 MG, BID
     Route: 048
     Dates: start: 2017

REACTIONS (13)
  - Hospitalisation [None]
  - Off label use [None]
  - Madarosis [None]
  - Nausea [Unknown]
  - Diarrhoea [None]
  - Vomiting [Unknown]
  - Dry skin [Recovering/Resolving]
  - Alopecia [None]
  - Abdominal discomfort [None]
  - Pruritus [Recovering/Resolving]
  - Product use in unapproved indication [None]
  - Diarrhoea [Unknown]
  - Adverse drug reaction [Unknown]
